FAERS Safety Report 10510104 (Version 1)
Quarter: 2014Q4

REPORT INFORMATION
  Report Type: Spontaneous
  Country: US (occurrence: US)
  Receive Date: 20141010
  Receipt Date: 20141010
  Transmission Date: 20150528
  Serious: Yes (Other)
  Sender: FDA-Public Use
  Company Number: US-BEH-2014045411

PATIENT
  Sex: Female

DRUGS (1)
  1. HIZENTRA [Suspect]
     Active Substance: HUMAN IMMUNOGLOBULIN G

REACTIONS (10)
  - Bronchoplasty [Unknown]
  - Small intestinal bacterial overgrowth [Unknown]
  - Dyspnoea [Unknown]
  - Tendon rupture [Unknown]
  - Hernia [Unknown]
  - Wheezing [Unknown]
  - Influenza like illness [Unknown]
  - Asthma [Unknown]
  - Malaise [Unknown]
  - Pruritus [Unknown]
